FAERS Safety Report 25954523 (Version 1)
Quarter: 2025Q4

REPORT INFORMATION
  Report Type: Spontaneous
  Country: LB (occurrence: LB)
  Receive Date: 20251024
  Receipt Date: 20251024
  Transmission Date: 20260117
  Serious: Yes (Life-Threatening, Hospitalization)
  Sender: ACCORD
  Company Number: LB-Accord-509543

PATIENT
  Age: 40 Year
  Sex: Female

DRUGS (7)
  1. ATROPINE [Suspect]
     Active Substance: ATROPINE
     Indication: Anaesthesia reversal
     Dosage: 0.02 MG/KG
     Route: 042
  2. NEOSTIGMINE [Suspect]
     Active Substance: NEOSTIGMINE
     Indication: Anaesthesia reversal
     Dosage: 0.04 MG/KG
     Route: 042
  3. PROPOFOL [Concomitant]
     Active Substance: PROPOFOL
     Indication: General anaesthesia
     Route: 042
  4. FENTANYL [Concomitant]
     Active Substance: FENTANYL
     Indication: General anaesthesia
     Route: 042
  5. ROCURONIUM [Concomitant]
     Active Substance: ROCURONIUM BROMIDE
     Indication: Muscle relaxant therapy
  6. SEVOFLURANE [Concomitant]
     Active Substance: SEVOFLURANE
     Indication: Maintenance of anaesthesia
     Dosage: 1.0 MINIMUM ALVEOLAR CONCENTRATION) IN A 50% OXYGEN/AIR MIXTURE.
  7. OXYGEN [Concomitant]
     Active Substance: OXYGEN
     Indication: Maintenance of anaesthesia
     Dosage: SEVOFLURANE (1.0 MINIMUM ALVEOLAR?CONCENTRATION) IN A 50% OXYGEN/AIR MIXTURE.

REACTIONS (1)
  - Stress cardiomyopathy [Recovered/Resolved]
